FAERS Safety Report 24442311 (Version 2)
Quarter: 2024Q4

REPORT INFORMATION
  Report Type: Report from Study
  Country: US (occurrence: US)
  Receive Date: 20241016
  Receipt Date: 20241017
  Transmission Date: 20250115
  Serious: No
  Sender: ROCHE
  Company Number: US-ROCHE-3535759

PATIENT
  Age: 26 Year
  Sex: Female
  Weight: 86.64 kg

DRUGS (4)
  1. HEMLIBRA [Suspect]
     Active Substance: EMICIZUMAB-KXWH
     Indication: Acquired haemophilia
     Route: 058
     Dates: start: 20240319
  2. HEMLIBRA [Suspect]
     Active Substance: EMICIZUMAB-KXWH
     Indication: Haemorrhagic disorder
  3. RITUXAN [Suspect]
     Active Substance: RITUXIMAB
     Indication: Acquired haemophilia
     Route: 041
     Dates: start: 20240314
  4. RITUXAN [Suspect]
     Active Substance: RITUXIMAB
     Indication: Haemorrhagic disorder

REACTIONS (2)
  - Off label use [Unknown]
  - No adverse event [Unknown]
